FAERS Safety Report 9094298 (Version 1)
Quarter: 2013Q1

REPORT INFORMATION
  Report Type: Spontaneous
  Country: IN (occurrence: IN)
  Receive Date: 20130201
  Receipt Date: 20130201
  Transmission Date: 20140127
  Serious: No
  Sender: FDA-Public Use
  Company Number: IN-B.I. PHARMACEUTICALS,INC./RIDGEFIELD-2013-CS-00066IG

PATIENT
  Age: 60 Year
  Sex: Male

DRUGS (2)
  1. TRAJENTA [Suspect]
  2. INSULIN [Concomitant]
     Route: 048

REACTIONS (2)
  - Mouth ulceration [Unknown]
  - Off label use [Unknown]
